FAERS Safety Report 7269950-5 (Version None)
Quarter: 2011Q1

REPORT INFORMATION
  Report Type: 
  Country: None (occurrence: None)
  Receive Date: 20110202
  Receipt Date: 20110125
  Transmission Date: 20110831
  Serious: Yes (Other)
  Sender: FDA-Public Use
  Company Number: IN-JNJFOC-20110200132

PATIENT
  Age: 20 Year
  Sex: Female

DRUGS (4)
  1. RISPERIDONE [Suspect]
     Indication: SCHIZOPHRENIA
     Route: 065
  2. TRIHEXYPHENIDYL [Suspect]
     Indication: SCHIZOPHRENIA
     Route: 065
  3. RISPERIDONE [Suspect]
     Route: 065
  4. RISPERIDONE [Suspect]
     Route: 065

REACTIONS (6)
  - WEIGHT INCREASED [None]
  - MENSTRUAL DISORDER [None]
  - ACNE [None]
  - BLOOD PROLACTIN INCREASED [None]
  - HIRSUTISM [None]
  - POLYCYSTIC OVARIES [None]
